FAERS Safety Report 17117239 (Version 3)
Quarter: 2020Q4

REPORT INFORMATION
  Report Type: Report from Study
  Country: BR (occurrence: BR)
  Receive Date: 20191205
  Receipt Date: 20201014
  Transmission Date: 20210113
  Serious: Yes (Hospitalization, Other)
  Sender: FDA-Public Use
  Company Number: BR-TAKEDA-2019TUS068929

PATIENT
  Sex: Female
  Weight: 85 kg

DRUGS (4)
  1. VEDOLIZUMAB [Suspect]
     Active Substance: VEDOLIZUMAB
     Indication: CROHN^S DISEASE
     Dosage: 300 MILLIGRAM
     Route: 042
     Dates: start: 20180924
  2. NORVAC [Concomitant]
     Active Substance: AMLODIPINE BESYLATE
     Dosage: 5 MILLIGRAM, QD
  3. OLMESARTAN [Concomitant]
     Active Substance: OLMESARTAN
     Indication: HYPERTENSION
     Dosage: UNK
  4. VEDOLIZUMAB [Suspect]
     Active Substance: VEDOLIZUMAB
     Dosage: 300 MILLIGRAM, Q4WEEKS
     Route: 042

REACTIONS (15)
  - Diarrhoea [Not Recovered/Not Resolved]
  - Pigmentation disorder [Unknown]
  - Dysmenorrhoea [Unknown]
  - Crohn^s disease [Recovered/Resolved]
  - Abdominal pain [Unknown]
  - Arthralgia [Not Recovered/Not Resolved]
  - Frequent bowel movements [Unknown]
  - Pharyngitis [Not Recovered/Not Resolved]
  - Abdominal distension [Unknown]
  - Anal incontinence [Unknown]
  - Bone pain [Unknown]
  - Rash macular [Unknown]
  - Urinary tract infection [Recovered/Resolved]
  - Intra-abdominal fluid collection [Unknown]
  - Ovarian cyst [Unknown]

NARRATIVE: CASE EVENT DATE: 2019
